FAERS Safety Report 14744860 (Version 1)
Quarter: 2018Q2

REPORT INFORMATION
  Report Type: Report from Study
  Country: US (occurrence: US)
  Receive Date: 20180411
  Receipt Date: 20180411
  Transmission Date: 20180711
  Serious: Yes (Other)
  Sender: FDA-Public Use
  Company Number: US-AMGEN-USASL2018046322

PATIENT
  Age: 69 Year
  Sex: Female

DRUGS (1)
  1. PROLIA [Suspect]
     Active Substance: DENOSUMAB
     Indication: OSTEOPOROSIS POSTMENOPAUSAL
     Dosage: 60 MG, Q6MO
     Route: 065
     Dates: start: 2016

REACTIONS (9)
  - Pruritus [Recovering/Resolving]
  - Fall [Unknown]
  - Erythema [Unknown]
  - Tooth infection [Not Recovered/Not Resolved]
  - Tooth fracture [Unknown]
  - Scab [Unknown]
  - Back pain [Unknown]
  - Upper limb fracture [Unknown]
  - Gingival discomfort [Not Recovered/Not Resolved]

NARRATIVE: CASE EVENT DATE: 201802
